FAERS Safety Report 23573863 (Version 1)
Quarter: 2024Q1

REPORT INFORMATION
  Report Type: Spontaneous
  Country: FR (occurrence: FR)
  Receive Date: 20240228
  Receipt Date: 20240228
  Transmission Date: 20240410
  Serious: Yes (Life-Threatening, Other)
  Sender: FDA-Public Use
  Company Number: None

PATIENT
  Age: 39 Year
  Sex: Female
  Weight: 79 kg

DRUGS (2)
  1. VIMPAT [Suspect]
     Active Substance: LACOSAMIDE
     Indication: Suicide attempt
     Dosage: 11.2 GRAMS PER DAY
     Route: 048
     Dates: start: 20240205, end: 20240205
  2. CLOBAZAM [Suspect]
     Active Substance: CLOBAZAM
     Indication: Suicide attempt
     Dosage: 150 MILLIGRAMS PER DAY
     Route: 048
     Dates: start: 20240205, end: 20240205

REACTIONS (4)
  - Cardiogenic shock [Recovered/Resolved]
  - Suicide attempt [Unknown]
  - Disturbance in attention [Recovered/Resolved]
  - Intentional overdose [Unknown]

NARRATIVE: CASE EVENT DATE: 20240205
